FAERS Safety Report 22059464 (Version 1)
Quarter: 2023Q1

REPORT INFORMATION
  Report Type: Report from Study
  Country: GR (occurrence: GR)
  Receive Date: 20230303
  Receipt Date: 20230303
  Transmission Date: 20230418
  Serious: Yes (Other)
  Sender: FDA-Public Use
  Company Number: GR-EMA-DD-20230214-6644851-085825

PATIENT

DRUGS (4)
  1. CETUXIMAB [Suspect]
     Active Substance: CETUXIMAB
     Indication: Squamous cell carcinoma of head and neck
     Dosage: 500 MG/M2, UNKNOWN (500 MG/M2 ON DAY 1 OF A 21-DAY CYCLE)
     Route: 065
     Dates: start: 200810, end: 201112
  2. FLUOROURACIL [Suspect]
     Active Substance: FLUOROURACIL
     Indication: Squamous cell carcinoma of head and neck
     Dosage: 1000 MG/M2, UNKNOWN (1000 MG/M2, CONTINUOUS 24-HOUR INFUSION ON DAYS 1-4)
     Route: 042
     Dates: start: 200810, end: 201112
  3. DOCETAXEL [Suspect]
     Active Substance: DOCETAXEL
     Indication: Squamous cell carcinoma of head and neck
     Dosage: 75 MG/M2, UNKNOWN (75 MG/M2 AS A 4-HOUR INFUSION ON DAY 1 OF A 21-DAY CYCLE )
     Route: 042
     Dates: start: 200810, end: 201112
  4. CISPLATIN [Suspect]
     Active Substance: CISPLATIN
     Indication: Squamous cell carcinoma of head and neck
     Dosage: 75 MG/M2, UNKNOWN (75 MG/M2 AS A 4-HOUR INFUSION ON DAY 1 OF A 21-DAY CYCLE )
     Route: 065
     Dates: start: 200810, end: 201112

REACTIONS (1)
  - Myocardial ischaemia [Unknown]
